FAERS Safety Report 11415464 (Version 1)
Quarter: 2015Q3

REPORT INFORMATION
  Report Type: Spontaneous
  Country: CA (occurrence: CA)
  Receive Date: 20150825
  Receipt Date: 20150825
  Transmission Date: 20151125
  Serious: Yes (Death, Other)
  Sender: FDA-Public Use
  Company Number: CA-TOLMAR, INC.-2014CA009247

PATIENT

DRUGS (11)
  1. METOPROLOL [Concomitant]
     Active Substance: METOPROLOL
     Indication: PRODUCT USED FOR UNKNOWN INDICATION
     Dosage: 50 MG, BID
     Route: 048
  2. ULORIC [Concomitant]
     Active Substance: FEBUXOSTAT
     Indication: PRODUCT USED FOR UNKNOWN INDICATION
     Dosage: 80 MG, UNK
     Route: 048
  3. LUPRON DEPOT [Suspect]
     Active Substance: LEUPROLIDE ACETATE
     Indication: PROSTATE CANCER
     Dosage: 30 MG, ONCE EVERY 4 MONTHS
     Route: 030
     Dates: start: 2012
  4. FEBUXOSTAT. [Concomitant]
     Active Substance: FEBUXOSTAT
     Indication: PRODUCT USED FOR UNKNOWN INDICATION
     Dosage: 80 MG, QID
     Route: 048
  5. GLICLAZIDE [Concomitant]
     Active Substance: GLICLAZIDE
     Indication: PRODUCT USED FOR UNKNOWN INDICATION
     Dosage: 250 MG, TID
     Route: 048
  6. CASODEX [Suspect]
     Active Substance: BICALUTAMIDE
     Indication: PRODUCT USED FOR UNKNOWN INDICATION
     Dosage: UNK
     Route: 065
  7. DOCUSATE SODIUM. [Concomitant]
     Active Substance: DOCUSATE SODIUM
     Indication: PRODUCT USED FOR UNKNOWN INDICATION
     Dosage: UNK
     Route: 048
  8. TAMSULOSIN [Concomitant]
     Active Substance: TAMSULOSIN
     Indication: PRODUCT USED FOR UNKNOWN INDICATION
     Route: 048
  9. ELIGARD [Suspect]
     Active Substance: LEUPROLIDE ACETATE
     Indication: PRODUCT USED FOR UNKNOWN INDICATION
     Route: 065
  10. ASA [Concomitant]
     Active Substance: ASPIRIN
     Indication: PRODUCT USED FOR UNKNOWN INDICATION
     Dosage: UNK
     Route: 065
  11. FLUTAMIDE. [Concomitant]
     Active Substance: FLUTAMIDE
     Indication: PRODUCT USED FOR UNKNOWN INDICATION
     Dosage: 250 MG, ONE IN ONE DAY
     Route: 048

REACTIONS (29)
  - Bone lesion [Fatal]
  - Purulent discharge [Fatal]
  - Drug resistance [Unknown]
  - Bladder neck obstruction [Fatal]
  - Urethral stenosis [Fatal]
  - Lethargy [Fatal]
  - Tumour invasion [Fatal]
  - Skin lesion [Fatal]
  - Osteoarthritis [Fatal]
  - Confusional state [Recovered/Resolved]
  - Death [Fatal]
  - Hypercalcaemia [Fatal]
  - Abdominal mass [Fatal]
  - Pleural effusion [Fatal]
  - Device related infection [Fatal]
  - Intervertebral disc degeneration [Fatal]
  - Drug intolerance [Unknown]
  - Arthralgia [Fatal]
  - Hypersomnia [Fatal]
  - Prostate cancer metastatic [Fatal]
  - Renal failure [Fatal]
  - Spinal osteoarthritis [Fatal]
  - Pathological fracture [Fatal]
  - Exostosis [Fatal]
  - Back pain [Fatal]
  - Malaise [Fatal]
  - Metastases to lung [Fatal]
  - Metastases to spine [Fatal]
  - Urinary tract infection [Fatal]
